FAERS Safety Report 22042264 (Version 1)
Quarter: 2023Q1

REPORT INFORMATION
  Report Type: Report from Study
  Country: US (occurrence: US)
  Receive Date: 20230227
  Receipt Date: 20230227
  Transmission Date: 20230417
  Serious: Yes (Hospitalization, Other)
  Sender: FDA-Public Use
  Company Number: US-TAKEDA-US201801989

PATIENT
  Age: 49 Year
  Sex: Male
  Weight: 58.5 kg

DRUGS (26)
  1. TEDUGLUTIDE [Suspect]
     Active Substance: TEDUGLUTIDE
     Indication: Short-bowel syndrome
     Dosage: 1.6 MG, QD
     Route: 058
     Dates: start: 20141113, end: 201501
  2. TEDUGLUTIDE [Suspect]
     Active Substance: TEDUGLUTIDE
     Indication: Short-bowel syndrome
     Dosage: 1.6 MG, QD
     Route: 058
     Dates: start: 20141113, end: 201501
  3. TEDUGLUTIDE [Suspect]
     Active Substance: TEDUGLUTIDE
     Indication: Short-bowel syndrome
     Dosage: 1.6 MG, QD
     Route: 058
     Dates: start: 20141113, end: 201501
  4. TEDUGLUTIDE [Suspect]
     Active Substance: TEDUGLUTIDE
     Indication: Short-bowel syndrome
     Dosage: 1.6 MG, QD
     Route: 058
     Dates: start: 20141113, end: 201501
  5. TEDUGLUTIDE [Suspect]
     Active Substance: TEDUGLUTIDE
     Dosage: 2.5 MG, QD
     Route: 058
     Dates: start: 20131203, end: 20140114
  6. TEDUGLUTIDE [Suspect]
     Active Substance: TEDUGLUTIDE
     Dosage: 2.5 MG, QD
     Route: 058
     Dates: start: 20131203, end: 20140114
  7. TEDUGLUTIDE [Suspect]
     Active Substance: TEDUGLUTIDE
     Dosage: 2.5 MG, QD
     Route: 058
     Dates: start: 20131203, end: 20140114
  8. TEDUGLUTIDE [Suspect]
     Active Substance: TEDUGLUTIDE
     Dosage: 2.5 MG, QD
     Route: 058
     Dates: start: 20131203, end: 20140114
  9. TEDUGLUTIDE [Suspect]
     Active Substance: TEDUGLUTIDE
     Dosage: 2.5 MG, QD
     Route: 058
     Dates: start: 20140121, end: 20141112
  10. TEDUGLUTIDE [Suspect]
     Active Substance: TEDUGLUTIDE
     Dosage: 2.5 MG, QD
     Route: 058
     Dates: start: 20140121, end: 20141112
  11. TEDUGLUTIDE [Suspect]
     Active Substance: TEDUGLUTIDE
     Dosage: 2.5 MG, QD
     Route: 058
     Dates: start: 20140121, end: 20141112
  12. TEDUGLUTIDE [Suspect]
     Active Substance: TEDUGLUTIDE
     Dosage: 2.5 MG, QD
     Route: 058
     Dates: start: 20140121, end: 20141112
  13. TEDUGLUTIDE [Suspect]
     Active Substance: TEDUGLUTIDE
     Dosage: 0.16 MILLILITER
     Route: 058
     Dates: start: 20131213, end: 201501
  14. TEDUGLUTIDE [Suspect]
     Active Substance: TEDUGLUTIDE
     Dosage: 0.16 MILLILITER
     Route: 058
     Dates: start: 20131213, end: 201501
  15. TEDUGLUTIDE [Suspect]
     Active Substance: TEDUGLUTIDE
     Dosage: 0.16 MILLILITER
     Route: 058
     Dates: start: 20131213, end: 201501
  16. TEDUGLUTIDE [Suspect]
     Active Substance: TEDUGLUTIDE
     Dosage: 0.16 MILLILITER
     Route: 058
     Dates: start: 20131213, end: 201501
  17. BENADRYL [Concomitant]
     Active Substance: DIPHENHYDRAMINE HYDROCHLORIDE
     Indication: Pruritus
  18. CYANOCOBALAMIN [Concomitant]
     Active Substance: CYANOCOBALAMIN
     Indication: Short-bowel syndrome
  19. VANCOMYCIN [Concomitant]
     Active Substance: VANCOMYCIN
     Indication: Bacteraemia
  20. CHOLECALCIFEROL [Concomitant]
     Active Substance: CHOLECALCIFEROL
     Indication: Short-bowel syndrome
  21. AMINO ACIDS\CARBOHYDRATES\MINERALS\VITAMINS [Concomitant]
     Active Substance: AMINO ACIDS\CARBOHYDRATES\MINERALS\VITAMINS
     Indication: Short-bowel syndrome
  22. DALBAVANCIN [Concomitant]
     Active Substance: DALBAVANCIN
     Indication: Device related infection
  23. HEPARIN [Concomitant]
     Active Substance: HEPARIN SODIUM
     Indication: Thrombosis prophylaxis
     Dosage: UNK UNK, QD
     Route: 058
     Dates: start: 20210124, end: 20210201
  24. ISAVUCONAZOLE [Concomitant]
     Active Substance: ISAVUCONAZOLE
     Indication: Device related sepsis
     Dosage: 372. MILLIGRAM, QD
     Route: 042
     Dates: start: 20210127, end: 20210223
  25. VANCOMYCIN [Concomitant]
     Active Substance: VANCOMYCIN
     Indication: Device related sepsis
     Dosage: 1.00 GRAM, QD
     Route: 042
     Dates: start: 20210124, end: 20210125
  26. MICAFUNGIN [Concomitant]
     Active Substance: MICAFUNGIN
     Indication: Device related sepsis
     Dosage: 150. MILLIGRAM, QD
     Route: 042
     Dates: start: 20210131

REACTIONS (1)
  - Deep vein thrombosis [Recovered/Resolved]

NARRATIVE: CASE EVENT DATE: 20151109
